FAERS Safety Report 9702433 (Version 1)
Quarter: 2013Q4

REPORT INFORMATION
  Report Type: Spontaneous
  Country: BR (occurrence: BR)
  Receive Date: 20131121
  Receipt Date: 20131121
  Transmission Date: 20140711
  Serious: Yes (Other)
  Sender: FDA-Public Use
  Company Number: BR-JNJFOC-20131108854

PATIENT
  Sex: Male

DRUGS (12)
  1. REMICADE [Suspect]
     Indication: CROHN^S DISEASE
     Dosage: THIRD DOSE OF INFLIXIMAB INFUSION
     Route: 042
  2. REMICADE [Suspect]
     Indication: CROHN^S DISEASE
     Route: 042
  3. METICORTEN [Concomitant]
     Indication: PAIN
     Route: 065
  4. METICORTEN [Concomitant]
     Indication: PAIN
     Route: 065
  5. METICORTEN [Concomitant]
     Indication: INFLAMMATION
     Route: 065
  6. METICORTEN [Concomitant]
     Indication: INFLAMMATION
     Route: 065
  7. TRAMAL [Concomitant]
     Indication: PAIN
     Route: 065
  8. TENADREN [Concomitant]
     Indication: HYPERTENSION
     Route: 065
  9. LOSARTAN [Concomitant]
     Indication: HYPERTENSION
     Route: 065
  10. ANTAK [Concomitant]
     Indication: GASTROINTESTINAL DISORDER
     Route: 065
  11. VITAMIN D [Concomitant]
     Indication: OSTEOPOROSIS
     Route: 065
  12. TYLENOL AP [Concomitant]
     Indication: PAIN
     Route: 065

REACTIONS (6)
  - Sensory disturbance [Recovered/Resolved]
  - Gastrointestinal disorder [Not Recovered/Not Resolved]
  - Memory impairment [Unknown]
  - Fistula [Not Recovered/Not Resolved]
  - Application site pain [Unknown]
  - Back disorder [Unknown]
